FAERS Safety Report 6403582-3 (Version None)
Quarter: 2009Q4

REPORT INFORMATION
  Report Type: 
  Country: None (occurrence: None)
  Receive Date: 20091016
  Receipt Date: 20091006
  Transmission Date: 20100525
  Serious: Yes (Other)
  Sender: FDA-Public Use
  Company Number: HU-JNJFOC-20091002086

PATIENT
  Age: 31 Year
  Sex: Female

DRUGS (1)
  1. INLFIXIMAB [Suspect]
     Indication: ANKYLOSING SPONDYLITIS
     Route: 042
     Dates: start: 20041201

REACTIONS (3)
  - ANKYLOSING SPONDYLITIS [None]
  - HYPERSENSITIVITY [None]
  - UVEITIS [None]
